FAERS Safety Report 19988154 (Version 1)
Quarter: 2021Q4

REPORT INFORMATION
  Report Type: Spontaneous
  Country: US (occurrence: US)
  Receive Date: 20211022
  Receipt Date: 20211022
  Transmission Date: 20220303
  Serious: No
  Sender: FDA-Public Use
  Company Number: US-HORIZON THERAPEUTICS-HZN-2021-003217

PATIENT
  Sex: Male

DRUGS (1)
  1. PROCYSBI [Suspect]
     Active Substance: CYSTEAMINE BITARTRATE
     Indication: Amino acid metabolism disorder
     Dosage: 900 MG, BID (12 BY 75 MG CAPSULE)
     Route: 065

REACTIONS (1)
  - Weight decreased [Unknown]
